FAERS Safety Report 8418731-5 (Version None)
Quarter: 2012Q2

REPORT INFORMATION
  Report Type: 
  Country: None (occurrence: None)
  Receive Date: 20120607
  Receipt Date: 20120530
  Transmission Date: 20120825
  Serious: Yes (Hospitalization)
  Sender: FDA-Public Use
  Company Number: US-BAYER-2011-070584

PATIENT
  Age: 48 Year
  Sex: Female
  Weight: 90.703 kg

DRUGS (25)
  1. YASMIN [Suspect]
     Indication: CONTRACEPTION
     Dosage: UNK UNK, QD
     Dates: start: 20020201, end: 20050901
  2. ARTHROTEC [Concomitant]
     Dosage: 50 MG, UNK
  3. YASMIN [Suspect]
     Indication: DYSFUNCTIONAL UTERINE BLEEDING
  4. NSAID'S [Concomitant]
     Indication: PAIN
     Dosage: THROUGHOUT LIFETIME, PRN
  5. ACETAMINOPHEN W/ CODEINE [Concomitant]
  6. LEVOTHROID [Concomitant]
     Dosage: 88 MICROGRAM
  7. TOPROL-XL [Concomitant]
     Dosage: 50 MG, UNK
  8. YASMIN [Suspect]
     Indication: MENSTRUATION IRREGULAR
  9. METFORMIN HCL [Concomitant]
     Dosage: 500 MG, UNK
  10. SEROQUEL [Concomitant]
     Dosage: 300 MG, UNK
  11. SYNTHROID [Concomitant]
     Dosage: 100 MCG
  12. MIRTAZAPINE [Concomitant]
     Dosage: 45 MG, UNK
  13. ACIPHEX [Concomitant]
     Dosage: 20 MG, UNK
  14. ULTRAM [Concomitant]
     Dosage: UNK UNK, PRN
  15. YASMIN [Suspect]
     Indication: PREMENSTRUAL SYNDROME
  16. YASMIN [Suspect]
  17. HYDROCHLOROTHIAZDE TAB [Concomitant]
     Dosage: 25 MG, UNK
  18. ASPIRIN [Concomitant]
     Dosage: 81 MG, UNK
  19. TRICOR [Concomitant]
     Dosage: 48 MG, UNK
  20. PENICILLIN VK [Concomitant]
     Dosage: 250 MG, UNK
  21. LITHIUM CARBONATE [Concomitant]
     Dosage: 300 MG, UNK
  22. LEVOTHROID [Concomitant]
     Indication: HYPOTHYROIDISM
     Dosage: UNK
     Dates: start: 20050101
  23. NORVASC [Concomitant]
     Dosage: 10 MG, UNK
  24. FLUOXETINE [Concomitant]
     Dosage: 40 MG, UNK
  25. ELIDEL [Concomitant]
     Dosage: 1% CREAM

REACTIONS (6)
  - ANHEDONIA [None]
  - PAIN [None]
  - PULMONARY EMBOLISM [None]
  - DYSPNOEA [None]
  - INJURY [None]
  - ANXIETY [None]
